FAERS Safety Report 21988747 (Version 1)
Quarter: 2023Q1

REPORT INFORMATION
  Report Type: Other
  Country: PL (occurrence: PL)
  Receive Date: 20230214
  Receipt Date: 20230214
  Transmission Date: 20230418
  Serious: Yes (Death, Other)
  Sender: FDA-Public Use
  Company Number: PL-CELLTRION HEALTHCARE HUNGARY KFT-2023PL001943

PATIENT
  Age: 7 Year
  Sex: Female

DRUGS (28)
  1. RITUXIMAB [Suspect]
     Active Substance: RITUXIMAB
     Indication: B-cell lymphoma
     Dosage: 375 MG/M2; DAY 1 (R-COPADM)
     Route: 041
  2. LEUCOVORIN [Suspect]
     Active Substance: LEUCOVORIN
     Indication: B-cell lymphoma
     Dosage: 15 MG/M2, ORALLY EVERY 1 H UNTIL MTX LEVEL IS BELOW 0.15 MMOL/L; DAY 3 (R-COPADM)
     Route: 065
  3. LEUCOVORIN [Suspect]
     Active Substance: LEUCOVORIN
     Dosage: 15 MG/M2, ORALLY EVERY 1 H UNTIL MTX LEVEL IS BELOW 0.15 MMOL/L; DAY 2 (R-COPADM)
     Route: 065
  4. LEUCOVORIN [Suspect]
     Active Substance: LEUCOVORIN
     Dosage: 15 MG/M2, ORALLY EVERY 1 H UNTIL MTX LEVEL IS BELOW 0.15 MMOL/L; DAY 4 (R-COPADM)
     Route: 065
  5. CYCLOPHOSPHAMIDE [Suspect]
     Active Substance: CYCLOPHOSPHAMIDE
     Indication: B-cell lymphoma
     Dosage: 300 MG/M2/ DOSE AS AN INFUSION OVER 15 MINS; DAY 1 (PRE-PHASE COP)UNKN
     Route: 065
  6. CYCLOPHOSPHAMIDE [Suspect]
     Active Substance: CYCLOPHOSPHAMIDE
     Dosage: 250 (2ND R-COPADM) MG/M2/DOSE EVERY 12 HR AS AN INFUSION OVER 15 MINS
     Route: 065
  7. CYCLOPHOSPHAMIDE [Suspect]
     Active Substance: CYCLOPHOSPHAMIDE
     Dosage: 200 (1STR-COPADM) MG/M2/DOSE EVERY 12 HR AS AN INFUSION OVER 15 MINS.
     Route: 065
  8. HYDROCORTISONE [Suspect]
     Active Substance: HYDROCORTISONE
     Indication: B-cell lymphoma
     Dosage: 15 MG; DAY 2 (R-COPADM)
     Route: 065
  9. HYDROCORTISONE [Suspect]
     Active Substance: HYDROCORTISONE
     Dosage: 15 MG; DAY 1 (PRE-PHASE COP)
     Route: 065
  10. METHOTREXATE [Suspect]
     Active Substance: METHOTREXATE
     Indication: B-cell lymphoma
     Dosage: 15 MG; DAY 2 (R-COPADM)
     Route: 065
  11. METHOTREXATE [Suspect]
     Active Substance: METHOTREXATE
     Dosage: 1.0 GRAM PER SQUARE METRE IN 500 ML DEXTROSE 5%; DAY 1 (R-COPADM)
     Route: 065
  12. METHOTREXATE [Suspect]
     Active Substance: METHOTREXATE
     Dosage: 15 MILLIGRAM; DAY 1 (PRE-PHASE COP)
     Route: 065
  13. VINCRISTINE [Suspect]
     Active Substance: VINCRISTINE
     Indication: B-cell lymphoma
     Dosage: 1.0 MG/M2 (MAX SINGLE DOSE 2.0 MG/M2); DAY 1 (PRE-PHASE COP)
     Route: 065
  14. VINCRISTINE [Suspect]
     Active Substance: VINCRISTINE
     Dosage: 2.0 MG/M2; DAY 1 (R-COPADM)
     Route: 065
  15. DOXORUBICIN [Suspect]
     Active Substance: DOXORUBICIN
     Indication: B-cell lymphoma
     Dosage: 60 MG/M2/DAY IN 1-H INFUSION; DAY 2 (R-COPADM)
     Route: 065
  16. PREDNISONE [Suspect]
     Active Substance: PREDNISONE
     Indication: B-cell lymphoma
     Dosage: 60 MG/M2/DAY (DIVIDED INTO BID DOSES) ORALLY; DAY 7 (PRE-PHASE COP)
     Route: 065
  17. PREDNISONE [Suspect]
     Active Substance: PREDNISONE
     Dosage: 60 MG/M2/DAY (DIVIDED INTO BID DOSES) ORALLY; DAY 1 (PRE-PHASE COP)
     Route: 065
  18. PREDNISONE [Suspect]
     Active Substance: PREDNISONE
     Dosage: 60 MG/M2/DAY (DIVIDED INTO BID DOSES) ORALLY; DAY 2 (PRE-PHASE COP)
     Route: 065
  19. PREDNISONE [Suspect]
     Active Substance: PREDNISONE
     Dosage: 60 MG/M2/DAY (DIVIDED INTO BID DOSES) ORALLY; DAY 2 (PRE-PHASE COP)
     Route: 065
  20. PREDNISONE [Suspect]
     Active Substance: PREDNISONE
     Dosage: 60 MG/M2/DAY (DIVIDED INTO BID DOSES) ORALLY; DAY 6 (R-COPADM); TRAIL TO ZERO OVER 3 DAYS
     Route: 065
  21. PREDNISONE [Suspect]
     Active Substance: PREDNISONE
     Dosage: 60 MG/M2/DAY (DIVIDED INTO BID DOSES) ORALLY; DAY 3 (PRE-PHASE COP)
     Route: 065
  22. PREDNISONE [Suspect]
     Active Substance: PREDNISONE
     Dosage: 60 MG/M2/DAY (DIVIDED INTO BID DOSES) ORALLY; DAY 2 (R-COPADM)
     Route: 065
  23. PREDNISONE [Suspect]
     Active Substance: PREDNISONE
     Dosage: 60 MG/M2/DAY (DIVIDED INTO BID DOSES) ORALLY; DAY 5 (PRE-PHASE COP)
     Route: 065
  24. PREDNISONE [Suspect]
     Active Substance: PREDNISONE
     Dosage: 60 MG/M2/DAY (DIVIDED INTO BID DOSES) ORALLY; DAY 4 (PRE-PHASE COP)
     Route: 065
  25. PREDNISONE [Suspect]
     Active Substance: PREDNISONE
     Dosage: 60 MG/M2/DAY (DIVIDED INTO BID DOSES) ORALLY; DAY 6 (PRE-PHASE COP)
     Route: 065
  26. PREDNISONE [Suspect]
     Active Substance: PREDNISONE
     Dosage: 60 MG/M2/DAY (DIVIDED INTO BID DOSES) ORALLY; DAY 3 (R-COPADM)
     Route: 065
  27. PREDNISONE [Suspect]
     Active Substance: PREDNISONE
     Dosage: 60 MG/M2/DAY (DIVIDED INTO BID DOSES) ORALLY; DAY 5 (R-COPADM)
     Route: 065
  28. PREDNISONE [Suspect]
     Active Substance: PREDNISONE
     Dosage: 60 MG/M2/DAY (DIVIDED INTO BID DOSES) ORALLY; DAY 4 (R-COPADM)
     Route: 065

REACTIONS (9)
  - Death [Fatal]
  - Urinary tract infection [Unknown]
  - Oral disorder [Unknown]
  - Hypertension [Unknown]
  - Thrombocytopenia [Unknown]
  - Leukopenia [Unknown]
  - Anaemia [Unknown]
  - Therapy non-responder [Unknown]
  - Febrile neutropenia [Unknown]
